FAERS Safety Report 6278691-2 (Version None)
Quarter: 2009Q3

REPORT INFORMATION
  Report Type: 
  Country: None (occurrence: None)
  Receive Date: 20090721
  Receipt Date: 20090630
  Transmission Date: 20100115
  Serious: Yes (Hospitalization)
  Sender: FDA-Public Use
  Company Number: 062750-2009-00006

PATIENT
  Sex: Female

DRUGS (1)
  1. ZICAM [Suspect]
     Dates: start: 20060201

REACTIONS (5)
  - AGEUSIA [None]
  - ANOSMIA [None]
  - CONDITION AGGRAVATED [None]
  - NASOPHARYNGITIS [None]
  - PNEUMONIA [None]
